FAERS Safety Report 8995106 (Version 1)
Quarter: 2013Q1

REPORT INFORMATION
  Report Type: Spontaneous
  Country: US (occurrence: US)
  Receive Date: 20130102
  Receipt Date: 20130102
  Transmission Date: 20140127
  Serious: Yes (Death, Life-Threatening, Hospitalization, Other)
  Sender: FDA-Public Use
  Company Number: US-B.I. PHARMACEUTICALS,INC./RIDGEFIELD-2012-BI-04470GD

PATIENT
  Age: 80 Year
  Sex: Female

DRUGS (4)
  1. DABIGATRAN ETEXILATE [Suspect]
     Dosage: 300 MG
  2. FUROSEMIDE [Concomitant]
  3. ANGIOTENSIN-CONVERTING ENZYME INHIBITOR [Concomitant]
  4. HYDROCHLOROTHIAZIDE [Concomitant]

REACTIONS (13)
  - Death [Fatal]
  - Subarachnoid haemorrhage [Unknown]
  - Subdural haemorrhage [Unknown]
  - Cerebral haematoma [Unknown]
  - Hydrocephalus [Unknown]
  - Muscle haemorrhage [Unknown]
  - Melaena [Unknown]
  - Somnolence [Unknown]
  - Hyporesponsive to stimuli [Unknown]
  - Respiratory distress [Unknown]
  - Renal failure acute [Unknown]
  - Hyperkalaemia [Unknown]
  - Fall [Unknown]
